FAERS Safety Report 8347257-2 (Version None)
Quarter: 2012Q2

REPORT INFORMATION
  Report Type: 
  Country: None (occurrence: None)
  Receive Date: 20120509
  Receipt Date: 20120508
  Transmission Date: 20120825
  Serious: No
  Sender: FDA-Public Use
  Company Number: US-PFIZER INC-2012112408

PATIENT
  Sex: Female

DRUGS (3)
  1. LYRICA [Suspect]
     Indication: NEURALGIA
     Dosage: 50 MG, 2X/DAY
     Route: 048
  2. LYRICA [Suspect]
     Dosage: UNK
     Route: 048
  3. LYRICA [Suspect]
     Indication: HYPOAESTHESIA
     Dosage: 50 MG, 1X/DAY
     Route: 048

REACTIONS (3)
  - EUPHORIC MOOD [None]
  - DRUG INEFFECTIVE [None]
  - HYPOAESTHESIA [None]
